FAERS Safety Report 17319904 (Version 3)
Quarter: 2020Q1

REPORT INFORMATION
  Report Type: Spontaneous
  Country: US (occurrence: US)
  Receive Date: 20200126
  Receipt Date: 20200228
  Transmission Date: 20200409
  Serious: No
  Sender: FDA-Public Use
  Company Number: US-BIOGEN-2020BI00831569

PATIENT
  Sex: Female

DRUGS (2)
  1. ZINBRYTA [Suspect]
     Active Substance: DACLIZUMAB
     Indication: MULTIPLE SCLEROSIS
     Route: 065
     Dates: start: 20170803
  2. ZINBRYTA [Suspect]
     Active Substance: DACLIZUMAB
     Route: 058

REACTIONS (2)
  - Malaise [Recovered/Resolved]
  - Headache [Recovered/Resolved]
